FAERS Safety Report 4494490-6 (Version None)
Quarter: 2004Q4

REPORT INFORMATION
  Report Type: 
  Country: None (occurrence: None)
  Receive Date: 20041102
  Receipt Date: 20041020
  Transmission Date: 20050328
  Serious: Yes (Other)
  Sender: FDA-Public Use
  Company Number: 2004082584

PATIENT
  Sex: Male
  Weight: 75 kg

DRUGS (3)
  1. PHENYTOIN SODIUM [Suspect]
     Indication: CONVULSION
     Dosage: 375 MG(1 D), ORAL
     Route: 048
     Dates: start: 19780101
  2. DIAMORPHINE (DIAMORPHINE) [Suspect]
     Indication: ILL-DEFINED DISORDER
  3. FLUOXETINE [Concomitant]

REACTIONS (5)
  - ANXIETY [None]
  - DRUG ABUSER [None]
  - DRUG DEPENDENCE [None]
  - IMPRISONMENT [None]
  - NERVOUSNESS [None]
